FAERS Safety Report 9858432 (Version 2)
Quarter: 2014Q1

REPORT INFORMATION
  Report Type: Spontaneous
  Country: US (occurrence: US)
  Receive Date: 20140131
  Receipt Date: 20140210
  Transmission Date: 20141002
  Serious: Yes (Life-Threatening, Other)
  Sender: FDA-Public Use
  Company Number: US-ASTRAZENECA-2014SE05072

PATIENT
  Age: 56 Year
  Sex: Female
  Weight: 56.4 kg

DRUGS (9)
  1. LIDOCAINE [Suspect]
     Indication: LOCAL ANAESTHESIA
     Route: 058
  2. LIDOCAINE [Suspect]
     Indication: LOCAL ANAESTHESIA
     Route: 058
  3. LIDOCAINE [Suspect]
     Indication: LOCAL ANAESTHESIA
     Route: 058
  4. CARVEDILOL [Concomitant]
  5. CANDESARTAN [Concomitant]
  6. HYDRALAZINE [Concomitant]
  7. ISOSORBIDE DINITRATE [Concomitant]
  8. MIDAZOLAM [Concomitant]
     Indication: SEDATION
  9. FENTANYL [Concomitant]
     Indication: SEDATION
     Route: 042

REACTIONS (2)
  - Overdose [Unknown]
  - Grand mal convulsion [Recovered/Resolved]
